FAERS Safety Report 5773439-X (Version None)
Quarter: 2008Q2

REPORT INFORMATION
  Report Type: 
  Country: None (occurrence: None)
  Receive Date: 20080616
  Receipt Date: 20080609
  Transmission Date: 20081010
  Serious: Yes (Death)
  Sender: FDA-Public Use
  Company Number: US-AVENTIS-200812768EU

PATIENT
  Age: 79 Year
  Sex: Male

DRUGS (11)
  1. ENOXAPARIN SODIUM [Suspect]
     Indication: THROMBOSIS PROPHYLAXIS
     Route: 058
     Dates: start: 20080128, end: 20080205
  2. PLACEBO [Suspect]
     Indication: THROMBOSIS PROPHYLAXIS
     Route: 048
     Dates: start: 20080128, end: 20080217
  3. ACETAMINOPHEN [Concomitant]
     Dates: start: 20080215
  4. POVIDONE IODINE [Concomitant]
     Dates: start: 20080215
  5. SERETIDE [Concomitant]
     Dates: start: 20080212
  6. LANSOPRAZOLE [Concomitant]
     Dates: start: 20080127
  7. AMLODIPINE [Concomitant]
     Dates: start: 20080201
  8. ASPIRIN [Concomitant]
  9. ALLOPURINOL [Concomitant]
  10. SIMVASTATIN [Concomitant]
     Dates: start: 20070326
  11. TPN [Concomitant]
     Dates: start: 20080215

REACTIONS (1)
  - SUDDEN DEATH [None]
